FAERS Safety Report 23567108 (Version 1)
Quarter: 2024Q1

REPORT INFORMATION
  Report Type: Spontaneous
  Country: FR (occurrence: FR)
  Receive Date: 20240226
  Receipt Date: 20240226
  Transmission Date: 20240410
  Serious: Yes (Hospitalization)
  Sender: FDA-Public Use
  Company Number: None

PATIENT
  Age: 36 Year
  Sex: Male
  Weight: 64 kg

DRUGS (10)
  1. FYCOMPA [Suspect]
     Active Substance: PERAMPANEL
     Indication: Epilepsy
     Dosage: 12MG PER DAY
     Route: 048
     Dates: start: 20230827
  2. FYCOMPA [Suspect]
     Active Substance: PERAMPANEL
     Dosage: DOSE INCREASED TO AN UNKNOWN DOSE
     Route: 048
  3. MIDAZOLAM [Interacting]
     Active Substance: MIDAZOLAM
     Indication: Sedation
     Dosage: 10MG/HOUR
     Dates: start: 20230829, end: 20230830
  4. VALPROATE SODIUM [Interacting]
     Active Substance: VALPROATE SODIUM
     Indication: Epilepsy
     Dosage: 4G/DAY
     Dates: start: 20230828
  5. LACOSAMIDE [Interacting]
     Active Substance: LACOSAMIDE
     Indication: Epilepsy
     Dosage: 200MG TWICE DAILY
     Dates: start: 20230828
  6. CANNABIDIOL [Interacting]
     Active Substance: CANNABIDIOL
     Indication: Epilepsy
     Dosage: 4MG 6 TIMES DAILY
     Dates: start: 20230825, end: 20230916
  7. ZONEGRAN [Interacting]
     Active Substance: ZONISAMIDE
     Indication: Epilepsy
     Dosage: 200MG TWICE DAILY
     Dates: end: 20230827
  8. LEVETIRACETAM [Interacting]
     Active Substance: LEVETIRACETAM
     Indication: Epilepsy
     Dosage: 1750 MG 2 TIMES A DAY
     Dates: start: 20230825, end: 20230911
  9. RIVOTRIL [Interacting]
     Active Substance: CLONAZEPAM
     Indication: Epilepsy
     Dosage: 2 MG 6 TIMES A DAY
     Dates: start: 20230828
  10. RIVOTRIL [Interacting]
     Active Substance: CLONAZEPAM
     Dosage: DOSE (REDUCED) AND FREQUENCY UNKNOWN

REACTIONS (2)
  - Psychotic disorder [Not Recovered/Not Resolved]
  - Drug interaction [Not Recovered/Not Resolved]

NARRATIVE: CASE EVENT DATE: 20230828
